FAERS Safety Report 4576142-7 (Version None)
Quarter: 2005Q1

REPORT INFORMATION
  Report Type: 
  Country: None (occurrence: None)
  Receive Date: 20050204
  Receipt Date: 20050125
  Transmission Date: 20050727
  Serious: Yes (Hospitalization, Other)
  Sender: FDA-Public Use
  Company Number: 200510195GDS

PATIENT
  Age: 79 Year
  Sex: Male

DRUGS (2)
  1. ASPIRIN [Suspect]
     Indication: ANGINA PECTORIS
     Dosage: ORAL
     Route: 048
  2. TICLODIPINE HYDROCHLORIDE        (TICLOPIDINE HYDROCHLORIDE) [Suspect]
     Indication: ANGINA PECTORIS
     Dosage: ORAL
     Route: 048

REACTIONS (9)
  - CARDIO-RESPIRATORY ARREST [None]
  - DRUG INTERACTION [None]
  - ELECTROCARDIOGRAM ST SEGMENT ABNORMAL [None]
  - GASTRIC HAEMORRHAGE [None]
  - GASTRIC ULCER [None]
  - HAEMATEMESIS [None]
  - HAEMATOMA [None]
  - OESOPHAGEAL ULCER [None]
  - THROMBOSIS [None]
